FAERS Safety Report 13901910 (Version 1)
Quarter: 2017Q3

REPORT INFORMATION
  Report Type: Spontaneous
  Country: US (occurrence: US)
  Receive Date: 20170824
  Receipt Date: 20170824
  Transmission Date: 20171127
  Serious: No
  Sender: FDA-Public Use
  Company Number: US-ROCHE-1129966

PATIENT
  Sex: Female

DRUGS (6)
  1. HERCEPTIN [Suspect]
     Active Substance: TRASTUZUMAB
     Dosage: IN 250 CC NORMAL SALINE
     Route: 042
     Dates: start: 19990127
  2. HERCEPTIN [Suspect]
     Active Substance: TRASTUZUMAB
     Dosage: IN 250 CC NORMAL SALINE
     Route: 042
     Dates: start: 19990203
  3. HERCEPTIN [Suspect]
     Active Substance: TRASTUZUMAB
     Dosage: IN 250 CC NORMAL SALINE
     Route: 042
     Dates: start: 19990211
  4. AREDIA [Concomitant]
     Active Substance: PAMIDRONATE DISODIUM
     Route: 042
  5. HERCEPTIN [Suspect]
     Active Substance: TRASTUZUMAB
     Indication: BREAST CANCER METASTATIC
     Dosage: LOADING DOSE-260 MG
     Route: 042
     Dates: start: 19981029
  6. TAMOXIFEN [Concomitant]
     Active Substance: TAMOXIFEN
     Route: 048

REACTIONS (2)
  - Headache [Unknown]
  - Hot flush [Unknown]
